FAERS Safety Report 7317405-1 (Version None)
Quarter: 2011Q1

REPORT INFORMATION
  Report Type: 
  Country: None (occurrence: None)
  Receive Date: 20110226
  Receipt Date: 20101116
  Transmission Date: 20110831
  Serious: No
  Sender: FDA-Public Use
  Company Number: US-ALLERGAN-1013659US

PATIENT
  Age: 46 Year
  Sex: Female
  Weight: 45.351 kg

DRUGS (2)
  1. BOTOX COSMETIC [Suspect]
     Indication: SKIN WRINKLING
     Dosage: 25 UNITS, SINGLE
     Dates: start: 20101012, end: 20101012
  2. BOTOX COSMETIC [Suspect]
     Dosage: UNK
     Dates: start: 20100608, end: 20100608

REACTIONS (2)
  - WRONG TECHNIQUE IN DRUG USAGE PROCESS [None]
  - EYELID PTOSIS [None]
